FAERS Safety Report 5916670-2 (Version None)
Quarter: 2008Q4

REPORT INFORMATION
  Report Type: 
  Country: None (occurrence: None)
  Receive Date: 20081009
  Receipt Date: 20081003
  Transmission Date: 20090506
  Serious: Yes (Hospitalization)
  Sender: FDA-Public Use
  Company Number: US024807

PATIENT
  Age: 49 Year
  Sex: Female

DRUGS (1)
  1. TREANDA [Suspect]
     Indication: CHRONIC LYMPHOCYTIC LEUKAEMIA
     Dosage: 100 MG/M2 2 CYCLES INTRAVENOUS
     Route: 042

REACTIONS (3)
  - FUNGAL INFECTION [None]
  - HERPES ZOSTER [None]
  - SEPSIS [None]
